FAERS Safety Report 19271220 (Version 1)
Quarter: 2021Q2

REPORT INFORMATION
  Report Type: Other
  Country: US (occurrence: US)
  Receive Date: 20210518
  Receipt Date: 20210518
  Transmission Date: 20210717
  Serious: Yes (Other)
  Sender: FDA-Public Use
  Company Number: US-ROCHE-2703785

PATIENT
  Sex: Female

DRUGS (25)
  1. PREDNISONE. [Concomitant]
     Active Substance: PREDNISONE
     Route: 048
  2. ACTEMRA [Suspect]
     Active Substance: TOCILIZUMAB
  3. ALLOPURINOL. [Concomitant]
     Active Substance: ALLOPURINOL
     Route: 048
  4. ASPIR 81 [Concomitant]
     Active Substance: ASPIRIN
     Route: 048
  5. ACTEMRA [Suspect]
     Active Substance: TOCILIZUMAB
     Indication: ARTHRITIS
  6. ACTEMRA [Suspect]
     Active Substance: TOCILIZUMAB
  7. ACTEMRA [Suspect]
     Active Substance: TOCILIZUMAB
  8. TRULICITY [Concomitant]
     Active Substance: DULAGLUTIDE
     Route: 058
  9. LASIX [Concomitant]
     Active Substance: FUROSEMIDE
     Route: 048
  10. ACTEMRA [Suspect]
     Active Substance: TOCILIZUMAB
  11. NITROGLYCERIN. [Concomitant]
     Active Substance: NITROGLYCERIN
     Route: 060
  12. VITAMIN D3 [Concomitant]
     Active Substance: CHOLECALCIFEROL
     Dosage: AS DIRECTED ORALLY
     Route: 048
  13. LEVOTHYROXINE SODIUM. [Concomitant]
     Active Substance: LEVOTHYROXINE SODIUM
     Dosage: 1 TAB ON AN EMPTY STOMACH IN THE MORNING ORALLY ONCE A DAY
     Route: 048
  14. NORCO [Concomitant]
     Active Substance: ACETAMINOPHEN\HYDROCODONE BITARTRATE
     Dosage: DOSE: 5?325 MG
     Route: 048
  15. ALBUTEROL SULFATE HFA [Concomitant]
     Active Substance: ALBUTEROL SULFATE
     Dosage: (90 BASE)MCG/ACT AEROSOL SOLUTIONS 2 PUFFS AS NEEDED INHALATION EVERY 6 HOURS
     Route: 055
  16. WARFARIN SODIUM. [Concomitant]
     Active Substance: WARFARIN SODIUM
     Route: 048
  17. ACTEMRA [Suspect]
     Active Substance: TOCILIZUMAB
     Indication: RHEUMATOID ARTHRITIS
     Route: 058
  18. ACTEMRA [Suspect]
     Active Substance: TOCILIZUMAB
  19. ACTEMRA [Suspect]
     Active Substance: TOCILIZUMAB
     Indication: OSTEOARTHRITIS
  20. TRELEGY ELLIPTA [Concomitant]
     Active Substance: FLUTICASONE FUROATE\UMECLIDINIUM BROMIDE\VILANTEROL TRIFENATATE
     Dosage: 100MCG/62.5MCG/25MCG?AEROSOL POWDER BREATH ACTIVATED 1 PUFF INHALATION ONCE A DAY
     Route: 055
  21. ACTEMRA [Suspect]
     Active Substance: TOCILIZUMAB
  22. COLCHICINE. [Concomitant]
     Active Substance: COLCHICINE
  23. LISINOPRIL. [Concomitant]
     Active Substance: LISINOPRIL
     Route: 048
  24. METOPROLOL. [Concomitant]
     Active Substance: METOPROLOL
     Route: 048
  25. COLCRYS [Concomitant]
     Active Substance: COLCHICINE
     Route: 048

REACTIONS (1)
  - Atrial fibrillation [Unknown]
